FAERS Safety Report 6485227-X (Version None)
Quarter: 2009Q4

REPORT INFORMATION
  Report Type: 
  Country: None (occurrence: None)
  Receive Date: 20091203
  Receipt Date: 20091118
  Transmission Date: 20100525
  Serious: Yes (Hospitalization)
  Sender: FDA-Public Use
  Company Number: 2009AL007440

PATIENT
  Age: 59 Year
  Sex: Male

DRUGS (8)
  1. VENLAFAXINE HCL [Suspect]
     Indication: DEPRESSION
     Dosage: 150 MG; QD
     Dates: start: 20091020, end: 20091022
  2. MIRTAZAPINE [Suspect]
     Indication: DEPRESSION
     Dosage: 90 MG; QD
  3. TRUXAL [Concomitant]
  4. SOBRIL [Concomitant]
  5. RELPAX [Concomitant]
  6. AKINETON [Concomitant]
  7. OLANZAPINE [Concomitant]
  8. NOZINAN [Concomitant]

REACTIONS (6)
  - BLOOD PRESSURE SYSTOLIC INCREASED [None]
  - BODY TEMPERATURE INCREASED [None]
  - DRUG INTERACTION [None]
  - HEART RATE INCREASED [None]
  - RESPIRATORY RATE INCREASED [None]
  - SEROTONIN SYNDROME [None]
